FAERS Safety Report 12900155 (Version 2)
Quarter: 2016Q4

REPORT INFORMATION
  Report Type: Other
  Country: FR (occurrence: FR)
  Receive Date: 20161101
  Receipt Date: 20161110
  Transmission Date: 20170207
  Serious: Yes (Death, Other)
  Sender: FDA-Public Use
  Company Number: FR-ASTELLAS-2016US042617

PATIENT
  Age: 69 Year
  Sex: Female

DRUGS (1)
  1. PROGRAF [Suspect]
     Active Substance: TACROLIMUS\TACROLIMUS ANHYDROUS
     Indication: STEM CELL TRANSPLANT
     Dosage: 0.7 MG, IN 1 HOUR
     Route: 042
     Dates: start: 20161003, end: 20161006

REACTIONS (11)
  - Blood triglycerides increased [Not Recovered/Not Resolved]
  - Drug level increased [Recovered/Resolved]
  - Psychomotor retardation [Unknown]
  - Medication error [Unknown]
  - Lethargy [Not Recovered/Not Resolved]
  - Off label use [Unknown]
  - Blood urea increased [Not Recovered/Not Resolved]
  - Blood creatinine increased [Not Recovered/Not Resolved]
  - Malnutrition [Unknown]
  - Respiratory failure [Fatal]
  - Renal failure [Fatal]

NARRATIVE: CASE EVENT DATE: 20161003
